FAERS Safety Report 18667271 (Version 1)
Quarter: 2020Q4

REPORT INFORMATION
  Report Type: Spontaneous
  Country: US (occurrence: US)
  Receive Date: 20201228
  Receipt Date: 20201228
  Transmission Date: 20210114
  Serious: No
  Sender: FDA-Public Use
  Company Number: US-B.I. PHARMACEUTICALS,INC./RIDGEFIELD-2020-BI-069842

PATIENT
  Age: 82 Year
  Sex: Male

DRUGS (1)
  1. STIOLTO RESPIMAT [Suspect]
     Active Substance: OLODATEROL HYDROCHLORIDE\TIOTROPIUM BROMIDE MONOHYDRATE
     Indication: PRODUCTIVE COUGH
     Dosage: 2 PUFFS BID
     Route: 065
     Dates: start: 2020

REACTIONS (3)
  - Product quality issue [Unknown]
  - Off label use [Unknown]
  - Dose calculation error [Unknown]

NARRATIVE: CASE EVENT DATE: 2020
